FAERS Safety Report 4656587-7 (Version None)
Quarter: 2005Q2

REPORT INFORMATION
  Report Type: 
  Country: None (occurrence: None)
  Receive Date: 20050506
  Receipt Date: 20050429
  Transmission Date: 20051028
  Serious: Yes (Disabling)
  Sender: FDA-Public Use
  Company Number: CIP05001027

PATIENT
  Age: 76 Year
  Sex: Female

DRUGS (5)
  1. ACTONEL [Suspect]
     Dosage: 35 MG, ORAL
     Route: 048
     Dates: start: 20050410, end: 20050410
  2. SALMETEROL XINAFOATE [Concomitant]
  3. FLUTICASONE PROPIONATE [Concomitant]
  4. RANITIDINE [Concomitant]
  5. DICLOFENAC SODIUM [Concomitant]

REACTIONS (4)
  - GASTROINTESTINAL DISORDER [None]
  - INCONTINENCE [None]
  - MALAISE [None]
  - PARALYSIS [None]
